FAERS Safety Report 5232867-1 (Version None)
Quarter: 2007Q1

REPORT INFORMATION
  Report Type: 
  Country: None (occurrence: None)
  Receive Date: 20070207
  Receipt Date: 20070129
  Transmission Date: 20070707
  Serious: Yes (Hospitalization)
  Sender: FDA-Public Use
  Company Number: BE-ELI_LILLY_AND_COMPANY-BE200609006353

PATIENT
  Age: 12 Year
  Sex: Male
  Weight: 30 kg

DRUGS (5)
  1. ATOMOXETINE HYDROCHLORIDE [Suspect]
     Indication: ATTENTION DEFICIT/HYPERACTIVITY DISORDER
     Dosage: 35 MG, UNKNOWN
     Route: 048
     Dates: start: 20040601, end: 20040617
  2. ATOMOXETINE HYDROCHLORIDE [Suspect]
     Dosage: 32.5 MG, UNKNOWN
     Route: 048
     Dates: start: 20040617, end: 20040627
  3. ATOMOXETINE HYDROCHLORIDE [Suspect]
     Dosage: 45 MG, UNKNOWN
     Route: 048
     Dates: start: 20040302
  4. ATOMOXETINE HYDROCHLORIDE [Suspect]
     Dosage: 25 MG, UNKNOWN
     Route: 048
     Dates: start: 20040727, end: 20050428
  5. ATOMOXETINE HYDROCHLORIDE [Suspect]
     Dosage: 45 MG, UNKNOWN
     Route: 048
     Dates: start: 20050428, end: 20060922

REACTIONS (1)
  - SYNCOPE [None]
